FAERS Safety Report 13886688 (Version 2)
Quarter: 2017Q3

REPORT INFORMATION
  Report Type: Spontaneous
  Country: None (occurrence: US)
  Receive Date: 20170821
  Receipt Date: 20170821
  Transmission Date: 20171127
  Serious: Yes (Hospitalization)
  Sender: FDA-Public Use
  Company Number: US-LNK INTERNATIONAL, INC.-2024849

PATIENT
  Age: 78 Year
  Sex: Female

DRUGS (5)
  1. PANTOPRAZOLE [Concomitant]
     Active Substance: PANTOPRAZOLE
  2. SIMVASTATIN. [Concomitant]
     Active Substance: SIMVASTATIN
     Dates: start: 2011, end: 201706
  3. PLAVIX [Concomitant]
     Active Substance: CLOPIDOGREL BISULFATE
     Dates: start: 2006, end: 201706
  4. ASPIRIN 81 MG ENTERIC COATED YELLOW TABLETS [Suspect]
     Active Substance: ASPIRIN
     Indication: ANTICOAGULANT THERAPY
     Route: 048
     Dates: start: 2016, end: 201706
  5. MELOXICAM. [Concomitant]
     Active Substance: MELOXICAM
     Dates: start: 2006, end: 201706

REACTIONS (1)
  - Ulcer haemorrhage [None]
